FAERS Safety Report 4387929-8 (Version None)
Quarter: 2004Q2

REPORT INFORMATION
  Report Type: 
  Country: None (occurrence: None)
  Receive Date: 20040607
  Receipt Date: 20031219
  Transmission Date: 20050107
  Serious: Yes (Other)
  Sender: FDA-Public Use
  Company Number: 354556

PATIENT
  Age: 32 Year
  Sex: Female
  Weight: 108.9 kg

DRUGS (3)
  1. ACCUTANE (ISOTRETIOIN) [Suspect]
     Indication: ACNE
     Dosage: ORAL
     Route: 048
     Dates: start: 19970715, end: 19980115
  2. NA [Concomitant]
     Dosage: NA
  3. ORTHRO TRI-CYCLEN (ETHINYL ESTRADIOL/NORGESTIMATE) [Concomitant]

REACTIONS (3)
  - BENIGN INTRACRANIAL HYPERTENSION [None]
  - HEADACHE [None]
  - VISION BLURRED [None]
